FAERS Safety Report 22161339 (Version 4)
Quarter: 2023Q2

REPORT INFORMATION
  Report Type: Spontaneous
  Country: GB (occurrence: GB)
  Receive Date: 20230331
  Receipt Date: 20230426
  Transmission Date: 20230722
  Serious: Yes (Death, Hospitalization)
  Sender: FDA-Public Use
  Company Number: GB-AMERICAN REGENT INC-2023000223

PATIENT
  Age: 83 Year
  Sex: Male
  Weight: 73.3 kg

DRUGS (2)
  1. FERINJECT [Suspect]
     Active Substance: FERRIC CARBOXYMALTOSE
     Indication: Blood iron decreased
     Dosage: 1000 MILLIGRAM (1 VIAL OF 1G IN 20 ML INJECTION) DILUTED IN 250 ML OF 0.9% SODIUM CHLORIDE ONCE IN W
     Dates: start: 20221013, end: 20221013
  2. FERINJECT [Suspect]
     Active Substance: FERRIC CARBOXYMALTOSE
     Indication: Anaemia

REACTIONS (3)
  - Cardiogenic shock [Unknown]
  - Dysphagia [Unknown]
  - Anaphylactic reaction [Fatal]

NARRATIVE: CASE EVENT DATE: 20221013
